FAERS Safety Report 24667068 (Version 2)
Quarter: 2024Q4

REPORT INFORMATION
  Report Type: Report from Study
  Country: TR (occurrence: TR)
  Receive Date: 20241126
  Receipt Date: 20241128
  Transmission Date: 20250115
  Serious: Yes (Hospitalization)
  Sender: INCYTE
  Company Number: TR-002147023-NVSC2024TR225272

PATIENT

DRUGS (11)
  1. RUXOLITINIB [Suspect]
     Active Substance: RUXOLITINIB
     Indication: Myelofibrosis
     Dosage: 10 MG (2/DAY)
     Route: 065
     Dates: start: 20210729
  2. NAVITOCLAX [Suspect]
     Active Substance: NAVITOCLAX
     Indication: Myelofibrosis
     Dosage: 50 MG, QD
     Route: 048
     Dates: start: 20210729
  3. ASPIRIN [Concomitant]
     Active Substance: ASPIRIN
     Indication: Erythromelalgia
     Dosage: 100 MG, QD
     Route: 065
     Dates: start: 2016
  4. PIRACETAM [Concomitant]
     Active Substance: PIRACETAM
     Indication: Dizziness
     Dosage: 800 MG, QD
     Route: 065
     Dates: start: 2019
  5. PANOCER [Concomitant]
     Indication: Gastrointestinal disorder prophylaxis
     Dosage: 40 MG, QD
     Route: 065
     Dates: start: 2018
  6. BRONKOLIN [Concomitant]
     Indication: Asthma
     Dosage: 300 MG (2/DAYS)
     Route: 065
     Dates: start: 20211014
  7. VENTOPIUM PLUS [Concomitant]
     Indication: Asthma
     Dosage: UNK, QD (0.5+2.5)
     Route: 065
     Dates: start: 20211014
  8. GLYCOPYRROLATE [Concomitant]
     Active Substance: GLYCOPYRROLATE
     Indication: Asthma
     Dosage: 50 UG, QD
     Route: 065
     Dates: start: 20211014
  9. FLOBEN [Concomitant]
     Indication: Asthma
     Dosage: 2 ML (2/DAYS)
     Route: 065
     Dates: start: 20211014
  10. NAZALNEM [Concomitant]
     Indication: Epistaxis
     Dosage: 20 ML (2/DAYS)
     Route: 065
     Dates: start: 20240827
  11. SULFARHIN [Concomitant]
     Indication: Epistaxis
     Dosage: 12 G (2/DAYS)
     Route: 065
     Dates: start: 20240827

REACTIONS (1)
  - Pneumonia [Not Recovered/Not Resolved]

NARRATIVE: CASE EVENT DATE: 20241115
